FAERS Safety Report 12090679 (Version 1)
Quarter: 2016Q1

REPORT INFORMATION
  Report Type: Spontaneous
  Country: US (occurrence: US)
  Receive Date: 20160218
  Receipt Date: 20160218
  Transmission Date: 20160526
  Serious: No
  Sender: FDA-Public Use
  Company Number: US-BAUSCH-BL-2015-015422

PATIENT
  Sex: Female

DRUGS (2)
  1. DILTIAZEM [Suspect]
     Active Substance: DILTIAZEM
     Indication: ARTERIAL STENT INSERTION
  2. DILTIAZEM [Suspect]
     Active Substance: DILTIAZEM
     Indication: ANGINA PECTORIS

REACTIONS (1)
  - Drug ineffective [Unknown]
